FAERS Safety Report 4951893-0 (Version None)
Quarter: 2006Q1

REPORT INFORMATION
  Report Type: 
  Country: None (occurrence: None)
  Receive Date: 20060322
  Receipt Date: 20060322
  Transmission Date: 20060701
  Serious: Yes (Hospitalization, Other)
  Sender: FDA-Public Use
  Company Number: None

PATIENT
  Age: 53 Year
  Sex: Male
  Weight: 85 kg

DRUGS (10)
  1. ISOVUE-300 [Suspect]
     Indication: COMPUTERISED TOMOGRAM
     Dosage: 130 ML IV   X1 DOSE
     Route: 042
  2. ORAL CONTRAST [Suspect]
  3. ALLOPURINOL [Concomitant]
  4. DOCUSATE/SENNA [Concomitant]
  5. FLUDROCORTISONE [Concomitant]
  6. GABAPENTIN [Concomitant]
  7. HYDROCORTISONE [Concomitant]
  8. HUMULIN 70/30 [Concomitant]
  9. MS CONTIN [Concomitant]
  10. OMEPRAZOLE [Concomitant]

REACTIONS (4)
  - BLOOD CREATININE INCREASED [None]
  - BLOOD POTASSIUM INCREASED [None]
  - MALAISE [None]
  - SIMILAR REACTION ON PREVIOUS EXPOSURE TO DRUG [None]
